FAERS Safety Report 13619558 (Version 1)
Quarter: 2017Q2

REPORT INFORMATION
  Report Type: Other
  Country: FR (occurrence: FR)
  Receive Date: 20170606
  Receipt Date: 20170606
  Transmission Date: 20170830
  Serious: Yes (Hospitalization)
  Sender: FDA-Public Use
  Company Number: FR-VALIDUS PHARMACEUTICALS LLC-FR-2017VAL000847

PATIENT
  Age: 80 Year
  Sex: Male

DRUGS (7)
  1. FLUDEOXYGLUCOSE (18F) [Suspect]
     Active Substance: FLUDEOXYGLUCOSE
     Indication: COMPUTERISED TOMOGRAM
     Dosage: UNK, ONCE
     Route: 065
     Dates: start: 20170307, end: 20170307
  2. GLUCOR [Concomitant]
     Active Substance: ACARBOSE
     Indication: PRODUCT USED FOR UNKNOWN INDICATION
     Dosage: UNK
  3. PANTOPRAZOLE [Concomitant]
     Active Substance: PANTOPRAZOLE
     Indication: PRODUCT USED FOR UNKNOWN INDICATION
     Dosage: UNK
  4. BIPRETERAX                         /01421201/ [Concomitant]
     Active Substance: INDAPAMIDE\PERINDOPRIL ERBUMINE
     Indication: PRODUCT USED FOR UNKNOWN INDICATION
     Dosage: UNK
     Dates: end: 20170327
  5. FUROSEMIDE. [Suspect]
     Active Substance: FUROSEMIDE
     Indication: OEDEMA
     Dosage: UNK
     Route: 065
     Dates: start: 20170323, end: 20170327
  6. ARCOXIA [Suspect]
     Active Substance: ETORICOXIB
     Indication: PAIN
     Dosage: UNK
     Route: 065
     Dates: start: 20170323, end: 20170327
  7. STAGID [Concomitant]
     Active Substance: METFORMIN PAMOATE
     Indication: PRODUCT USED FOR UNKNOWN INDICATION
     Dosage: UNK
     Dates: end: 20170327

REACTIONS (1)
  - Glomerulonephritis [Not Recovered/Not Resolved]

NARRATIVE: CASE EVENT DATE: 20170327
